FAERS Safety Report 7259655-9 (Version None)
Quarter: 2011Q1

REPORT INFORMATION
  Report Type: 
  Country: None (occurrence: None)
  Receive Date: 20110130
  Receipt Date: 20101006
  Transmission Date: 20110831
  Serious: No
  Sender: FDA-Public Use
  Company Number: US-ABBOTT-10P-163-0646160-00

PATIENT
  Sex: Female

DRUGS (3)
  1. IBUPROFEN [Concomitant]
     Indication: PRODUCT USED FOR UNKNOWN INDICATION
  2. HUMIRA [Suspect]
     Indication: RHEUMATOID ARTHRITIS
     Dates: start: 20100224
  3. FLEXERIL [Concomitant]
     Indication: MUSCLE TIGHTNESS

REACTIONS (18)
  - RASH PAPULAR [None]
  - INJECTION SITE WARMTH [None]
  - INCORRECT DOSE ADMINISTERED [None]
  - INJECTION SITE RASH [None]
  - URTICARIA [None]
  - INJECTION SITE SWELLING [None]
  - DRUG EFFECT DECREASED [None]
  - INAPPROPRIATE SCHEDULE OF DRUG ADMINISTRATION [None]
  - DRUG INEFFECTIVE [None]
  - INJECTION SITE PAIN [None]
  - INJECTION SITE PRURITUS [None]
  - RASH PRURITIC [None]
  - RASH [None]
  - RHEUMATOID ARTHRITIS [None]
  - HYPERSENSITIVITY [None]
  - INJECTION SITE ERYTHEMA [None]
  - PRURITUS [None]
  - DEVICE MALFUNCTION [None]
